FAERS Safety Report 18922561 (Version 1)
Quarter: 2021Q1

REPORT INFORMATION
  Report Type: Other
  Country: CN (occurrence: CN)
  Receive Date: 20210222
  Receipt Date: 20210222
  Transmission Date: 20210420
  Serious: Yes (Other)
  Sender: FDA-Public Use
  Company Number: CN-ROCHE-2773556

PATIENT
  Age: 55 Year
  Sex: Female

DRUGS (1)
  1. LUCENTIS [Suspect]
     Active Substance: RANIBIZUMAB
     Indication: RETINAL VEIN OCCLUSION
     Route: 031
     Dates: start: 20210202

REACTIONS (2)
  - Ocular hyperaemia [Recovering/Resolving]
  - Scleral haemorrhage [Recovering/Resolving]

NARRATIVE: CASE EVENT DATE: 20210203
